FAERS Safety Report 6556405-6 (Version None)
Quarter: 2010Q1

REPORT INFORMATION
  Report Type: 
  Country: None (occurrence: None)
  Receive Date: 20100128
  Receipt Date: 20100122
  Transmission Date: 20100710
  Serious: Yes (Death)
  Sender: FDA-Public Use
  Company Number: A0841549A

PATIENT
  Sex: Male

DRUGS (10)
  1. SERETIDE [Suspect]
     Indication: DRUG USE FOR UNKNOWN INDICATION
     Route: 065
  2. SPIRIVA [Concomitant]
  3. SPIRONOLACTONE [Concomitant]
  4. FUROSEMIDE [Concomitant]
  5. IPRATROPIUM [Concomitant]
  6. ALBUTEROL [Concomitant]
  7. ALPRAZOLAM [Concomitant]
  8. NISTATIN [Concomitant]
  9. OMEPRAZOLE [Concomitant]
  10. OXYGEN [Concomitant]

REACTIONS (1)
  - RESPIRATORY ARREST [None]
